FAERS Safety Report 12717999 (Version 3)
Quarter: 2016Q4

REPORT INFORMATION
  Report Type: Spontaneous
  Country: US (occurrence: US)
  Receive Date: 20160906
  Receipt Date: 20161018
  Transmission Date: 20170207
  Serious: Yes (Hospitalization, Other)
  Sender: FDA-Public Use
  Company Number: US-SAOL THERAPEUTICS-2016SAO00546

PATIENT
  Age: 62 Year
  Sex: Male

DRUGS (6)
  1. BACLOFEN. [Suspect]
     Active Substance: BACLOFEN
     Indication: PAIN
     Dosage: 149.52 ?G, \DAY
  2. FENTANYL. [Suspect]
     Active Substance: FENTANYL
     Dosage: 12.989 ?G, \DAY
     Route: 037
  3. CLONIDINE. [Suspect]
     Active Substance: CLONIDINE
     Dosage: 0.577 MG, \DAY
  4. BACLOFEN. [Suspect]
     Active Substance: BACLOFEN
     Indication: SPINAL PAIN
     Dosage: 207.82 ?G, \DAY
     Route: 037
  5. FENTANYL. [Suspect]
     Active Substance: FENTANYL
     Dosage: 8.495 MG, \DAY
  6. CLONIDINE. [Suspect]
     Active Substance: CLONIDINE
     Dosage: 0.883 ?G, \DAY
     Route: 037

REACTIONS (10)
  - Drug ineffective for unapproved indication [Unknown]
  - Dizziness [Unknown]
  - Balance disorder [Unknown]
  - Sedation [Recovered/Resolved]
  - Fall [Unknown]
  - Drug withdrawal syndrome [Recovered/Resolved]
  - Hallucination [Unknown]
  - Device infusion issue [Unknown]
  - Headache [Unknown]
  - Off label use [Unknown]

NARRATIVE: CASE EVENT DATE: 20150310
